FAERS Safety Report 19233751 (Version 1)
Quarter: 2021Q2

REPORT INFORMATION
  Report Type: Spontaneous
  Country: IL (occurrence: IL)
  Receive Date: 20210507
  Receipt Date: 20210507
  Transmission Date: 20210717
  Serious: Yes (Death)
  Sender: FDA-Public Use
  Company Number: IL-NOVOPROD-809074

PATIENT
  Age: 5 Month
  Sex: Male

DRUGS (5)
  1. HEPARIN [Concomitant]
     Active Substance: HEPARIN SODIUM
     Indication: PRODUCT USED FOR UNKNOWN INDICATION
     Dosage: UNK
     Route: 065
  2. NOVOSEVEN RT [Suspect]
     Active Substance: COAGULATION FACTOR VIIA RECOMBINANT HUMAN
     Indication: RETROPERITONEAL HAEMATOMA
  3. EMICIZUMAB. [Concomitant]
     Active Substance: EMICIZUMAB
     Indication: PROPHYLAXIS
  4. NOVOSEVEN RT [Suspect]
     Active Substance: COAGULATION FACTOR VIIA RECOMBINANT HUMAN
     Indication: HAEMOPHILIA A WITH ANTI FACTOR VIII
     Dosage: 270 UG/KG/DOSE
     Route: 065
  5. EMICIZUMAB. [Concomitant]
     Active Substance: EMICIZUMAB
     Indication: HAEMOPHILIA A WITH ANTI FACTOR VIII
     Dosage: UNK
     Route: 065

REACTIONS (3)
  - Retroperitoneal haematoma [Fatal]
  - Drug ineffective [Fatal]
  - Off label use [Unknown]
